FAERS Safety Report 24317919 (Version 1)
Quarter: 2024Q3

REPORT INFORMATION
  Report Type: Spontaneous
  Country: GB (occurrence: GB)
  Receive Date: 20240913
  Receipt Date: 20240913
  Transmission Date: 20241017
  Serious: Yes (Disabling)
  Sender: TEVA
  Company Number: None

PATIENT
  Sex: Female

DRUGS (1)
  1. EZETIMIBE [Suspect]
     Active Substance: EZETIMIBE
     Indication: Adverse drug reaction
     Route: 065
     Dates: end: 202402

REACTIONS (1)
  - Pancreatic disorder [Not Recovered/Not Resolved]
